FAERS Safety Report 17453681 (Version 1)
Quarter: 2020Q1

REPORT INFORMATION
  Report Type: Spontaneous
  Country: US (occurrence: US)
  Receive Date: 20200224
  Receipt Date: 20200224
  Transmission Date: 20200409
  Serious: No
  Sender: FDA-Public Use
  Company Number: US-VYERA PHARMACEUTICALS, LLC-2019VYE00018

PATIENT
  Sex: Female
  Weight: 58.5 kg

DRUGS (5)
  1. FOLAFY [Concomitant]
  2. SULFADIAZINE. [Concomitant]
     Active Substance: SULFADIAZINE
  3. DARAPRIM [Suspect]
     Active Substance: PYRIMETHAMINE
     Indication: TOXOPLASMOSIS
     Dosage: 100 MG, 1X/DAY ON DAY ONE
     Route: 048
     Dates: start: 20190518, end: 20190518
  4. DIGOXIN. [Concomitant]
     Active Substance: DIGOXIN
  5. DARAPRIM [Suspect]
     Active Substance: PYRIMETHAMINE
     Dosage: 50 MG, 1X/DAY
     Route: 048
     Dates: start: 20190519, end: 20190529

REACTIONS (3)
  - Liver disorder [Unknown]
  - Renal disorder [Unknown]
  - Rash [Not Recovered/Not Resolved]

NARRATIVE: CASE EVENT DATE: 2019
